FAERS Safety Report 23526418 (Version 1)
Quarter: 2024Q1

REPORT INFORMATION
  Report Type: Spontaneous
  Country: US (occurrence: None)
  Receive Date: 20240214
  Receipt Date: 20240214
  Transmission Date: 20240410
  Serious: Yes (unspecified)
  Sender: FDA-Public Use
  Company Number: None

PATIENT
  Age: 15 Year
  Sex: Female
  Weight: 72.9 kg

DRUGS (1)
  1. INFED [Suspect]
     Active Substance: IRON DEXTRAN
     Indication: Iron deficiency
     Dosage: FREQUENCY : ONCE;?
     Route: 042

REACTIONS (4)
  - Infusion related reaction [None]
  - Flushing [None]
  - Unresponsive to stimuli [None]
  - Skin discolouration [None]

NARRATIVE: CASE EVENT DATE: 20240214
